FAERS Safety Report 6519832-9 (Version None)
Quarter: 2009Q4

REPORT INFORMATION
  Report Type: 
  Country: None (occurrence: None)
  Receive Date: 20091228
  Receipt Date: 20091228
  Transmission Date: 20100525
  Serious: Yes (Hospitalization)
  Sender: FDA-Public Use
  Company Number: None

PATIENT
  Age: 60 Year
  Sex: Female
  Weight: 54 kg

DRUGS (9)
  1. LANOXIN [Suspect]
     Indication: ATRIAL FIBRILLATION
     Dosage: 0.25 MG Q 2HOURS X4 DOSES
  2. AMIODARONE HCL [Suspect]
     Dosage: 900MG/500ML DRIP
  3. DILTIAZEM [Concomitant]
  4. FENTANYL-100 [Concomitant]
  5. NEXIUM [Concomitant]
  6. ATROVENT [Concomitant]
  7. COLACE [Concomitant]
  8. SYNTHROID [Concomitant]
  9. ARGATROBAN [Concomitant]

REACTIONS (1)
  - CARDIOACTIVE DRUG LEVEL INCREASED [None]
